FAERS Safety Report 9113992 (Version 1)
Quarter: 2013Q1

REPORT INFORMATION
  Report Type: Spontaneous
  Country: US (occurrence: None)
  Receive Date: 20130220
  Receipt Date: 20130220
  Transmission Date: 20140127
  Serious: Yes (Hospitalization)
  Sender: FDA-Public Use
  Company Number: None

PATIENT
  Sex: Female
  Weight: 99 kg

DRUGS (1)
  1. CARBOPLATIN [Suspect]
     Dates: end: 20121105

REACTIONS (2)
  - Pancytopenia [None]
  - Toxicity to various agents [None]
